FAERS Safety Report 8134142-4 (Version None)
Quarter: 2012Q1

REPORT INFORMATION
  Report Type: 
  Country: None (occurrence: None)
  Receive Date: 20120213
  Receipt Date: 20120213
  Transmission Date: 20120608
  Serious: Yes (Other)
  Sender: FDA-Public Use
  Company Number: None

PATIENT
  Age: 79 Year
  Sex: Male

DRUGS (8)
  1. IBUPROFEN [Concomitant]
  2. TAMSULOSIN HCL [Suspect]
  3. LISINOPRIL [Concomitant]
  4. SIMVASTATIN [Concomitant]
  5. FINASTERIDE [Concomitant]
  6. OXYCODONE HCL AND ACETAMINOPHEN [Concomitant]
  7. REVLIMID [Suspect]
     Indication: MULTIPLE MYELOMA
     Dosage: REVLIMID 25 MG DAILY X21D/28D ORALLY
     Route: 048
     Dates: start: 20110701
  8. FAMOTIDINE [Concomitant]

REACTIONS (4)
  - RASH ERYTHEMATOUS [None]
  - DIZZINESS [None]
  - RASH GENERALISED [None]
  - SYNCOPE [None]
